FAERS Safety Report 5169185-6 (Version None)
Quarter: 2006Q4

REPORT INFORMATION
  Report Type: 
  Country: None (occurrence: None)
  Receive Date: 20061211
  Receipt Date: 20061016
  Transmission Date: 20070319
  Serious: Yes (Hospitalization)
  Sender: FDA-Public Use
  Company Number: US-NOVOPROD-257794

PATIENT
  Age: 63 Year
  Sex: Male

DRUGS (9)
  1. NOVOLIN N [Suspect]
     Indication: INSULIN-REQUIRING TYPE II DIABETES MELLITUS
     Dosage: 85 IU, QD
     Route: 058
  2. ASPIRIN [Concomitant]
     Indication: ILL-DEFINED DISORDER
     Dosage: 81 MG, QD
     Route: 048
  3. FELODIPINE [Concomitant]
     Indication: ILL-DEFINED DISORDER
     Dosage: 5 MG, QD
     Route: 048
  4. LISINOPRIL [Concomitant]
     Indication: HYPERTENSION
     Dosage: 40 MG, QD
     Route: 048
  5. METOPROLOL SUCCINATE [Concomitant]
     Indication: HYPERTENSION
     Dosage: 50 MG, BID
     Route: 048
  6. NAPROSYN                           /00256201/ [Concomitant]
     Indication: MUSCULOSKELETAL PAIN
     Dosage: 500 MG, PRN
     Route: 048
  7. BUPROPION HCL [Concomitant]
     Indication: DEPRESSION
     Dosage: 100 MG, BID
  8. CRESTOR [Concomitant]
     Indication: CORONARY ARTERY DISEASE
     Dosage: 20 MG, QD
     Route: 048
     Dates: start: 20060801
  9. VARDENAFIL [Concomitant]
     Indication: ILL-DEFINED DISORDER
     Dosage: UNK, PRN

REACTIONS (2)
  - DIABETIC KETOACIDOSIS [None]
  - PYREXIA [None]
